FAERS Safety Report 24546521 (Version 1)
Quarter: 2024Q4

REPORT INFORMATION
  Report Type: Spontaneous
  Country: HN (occurrence: HN)
  Receive Date: 20241024
  Receipt Date: 20241024
  Transmission Date: 20250115
  Serious: Yes (Disabling)
  Sender: SANOFI AVENTIS
  Company Number: HN-SA-2024SA302728

PATIENT
  Age: 59 Year
  Sex: Male

DRUGS (1)
  1. LANTUS SOLOSTAR [Suspect]
     Active Substance: INSULIN GLARGINE
     Indication: Type 2 diabetes mellitus
     Dosage: 20 IU, QD
     Route: 058
     Dates: start: 20240916

REACTIONS (2)
  - Accident [Unknown]
  - Limb injury [Unknown]

NARRATIVE: CASE EVENT DATE: 20240901
